FAERS Safety Report 10392705 (Version 1)
Quarter: 2014Q3

REPORT INFORMATION
  Report Type: Spontaneous
  Country: JP (occurrence: JP)
  Receive Date: 20140819
  Receipt Date: 20140819
  Transmission Date: 20150326
  Serious: Yes (Hospitalization)
  Sender: FDA-Public Use
  Company Number: JP-JNJFOC-20140815672

PATIENT
  Age: 5 Decade
  Sex: Male

DRUGS (13)
  1. XEPLION [Suspect]
     Active Substance: PALIPERIDONE PALMITATE
     Indication: SCHIZOPHRENIA
     Route: 030
     Dates: start: 20140710, end: 20140710
  2. XEPLION [Suspect]
     Active Substance: PALIPERIDONE PALMITATE
     Indication: SCHIZOPHRENIA
     Route: 030
     Dates: start: 20140612, end: 20140612
  3. CERCINE [Concomitant]
     Active Substance: DIAZEPAM
     Route: 065
  4. XEPLION [Suspect]
     Active Substance: PALIPERIDONE PALMITATE
     Indication: SCHIZOPHRENIA
     Route: 030
     Dates: start: 20140515, end: 20140515
  5. XEPLION [Suspect]
     Active Substance: PALIPERIDONE PALMITATE
     Indication: SCHIZOPHRENIA
     Route: 030
     Dates: start: 20140417, end: 20140417
  6. IMIGRAN [Concomitant]
     Active Substance: SUMATRIPTAN SUCCINATE
     Route: 065
  7. LENDORMIN [Concomitant]
     Active Substance: BROTIZOLAM
     Route: 065
  8. DEPAS [Concomitant]
     Active Substance: ETIZOLAM
     Route: 048
  9. BLOPRESS [Concomitant]
     Active Substance: CANDESARTAN CILEXETIL
     Route: 048
  10. EVAMYL [Concomitant]
     Active Substance: LORMETAZEPAM
     Route: 065
  11. PANTOSIN [Concomitant]
     Active Substance: PANTETHINE
     Route: 065
  12. PURSENNID [Concomitant]
     Active Substance: SENNOSIDES A AND B CALCIUM
     Route: 048
  13. SILECE [Concomitant]
     Active Substance: FLUNITRAZEPAM
     Route: 065

REACTIONS (3)
  - Restlessness [Unknown]
  - Mental disorder [Unknown]
  - Abnormal behaviour [Unknown]

NARRATIVE: CASE EVENT DATE: 20140715
